FAERS Safety Report 19030708 (Version 1)
Quarter: 2021Q1

REPORT INFORMATION
  Report Type: Spontaneous
  Country: US (occurrence: US)
  Receive Date: 20210319
  Receipt Date: 20210319
  Transmission Date: 20210420
  Serious: Yes (Hospitalization)
  Sender: FDA-Public Use
  Company Number: US-MYLANLABS-2021M1016071

PATIENT
  Age: 43 Year
  Sex: Female

DRUGS (3)
  1. NALOXONE [Suspect]
     Active Substance: NALOXONE
     Indication: TOXICITY TO VARIOUS AGENTS
     Dosage: 6.4 MILLIGRAM, SEPARATE BOLUSES, INFUSION
  2. TIZANIDINE. [Suspect]
     Active Substance: TIZANIDINE
     Indication: PRODUCT USED FOR UNKNOWN INDICATION
     Route: 065
  3. NALOXONE [Suspect]
     Active Substance: NALOXONE
     Indication: INTENTIONAL OVERDOSE

REACTIONS (9)
  - Hypertension [Recovered/Resolved]
  - Toxicity to various agents [Recovered/Resolved]
  - Tachycardia [Recovered/Resolved]
  - Bradycardia [Recovered/Resolved]
  - Miosis [Recovered/Resolved]
  - Lethargy [Recovered/Resolved]
  - Off label use [Unknown]
  - Intentional overdose [Recovered/Resolved]
  - Hypotension [Recovered/Resolved]
